FAERS Safety Report 23774796 (Version 1)
Quarter: 2024Q2

REPORT INFORMATION
  Report Type: Spontaneous
  Country: US (occurrence: None)
  Receive Date: 20240423
  Receipt Date: 20240423
  Transmission Date: 20240716
  Serious: Yes (Hospitalization)
  Sender: FDA-Public Use
  Company Number: None

PATIENT
  Age: 90 Year
  Sex: Male
  Weight: 81 kg

DRUGS (1)
  1. GABAPENTIN [Suspect]
     Active Substance: GABAPENTIN
     Dosage: FREQUENCY : DAILY;?
     Route: 048
     Dates: start: 20230414, end: 20230512

REACTIONS (3)
  - Muscle spasms [None]
  - Myoclonus [None]
  - Neuropathy peripheral [None]

NARRATIVE: CASE EVENT DATE: 20230510
